FAERS Safety Report 8136614-5 (Version None)
Quarter: 2012Q1

REPORT INFORMATION
  Report Type: 
  Country: None (occurrence: None)
  Receive Date: 20120214
  Receipt Date: 20120209
  Transmission Date: 20120608
  Serious: Yes (Death)
  Sender: FDA-Public Use
  Company Number: GB-ROCHE-1015748

PATIENT
  Sex: Female
  Weight: 53.6 kg

DRUGS (7)
  1. FERROUS FUMARATE [Concomitant]
  2. LUCENTIS [Suspect]
     Indication: PRODUCT USED FOR UNKNOWN INDICATION
     Route: 050
  3. RAMIPRIL [Concomitant]
  4. ANASTROZOLE [Concomitant]
  5. VESICARE [Concomitant]
  6. FUROSEMIDE [Concomitant]
  7. DIGOXIN [Concomitant]

REACTIONS (2)
  - URINARY TRACT INFECTION [None]
  - UROSEPSIS [None]
